FAERS Safety Report 7260100-8 (Version None)
Quarter: 2011Q1

REPORT INFORMATION
  Report Type: 
  Country: None (occurrence: None)
  Receive Date: 20110130
  Receipt Date: 20100917
  Transmission Date: 20110831
  Serious: Yes (Other)
  Sender: FDA-Public Use
  Company Number: US-ABBOTT-10P-163-0671726-00

PATIENT
  Sex: Female
  Weight: 128.94 kg

DRUGS (9)
  1. HYDROCHLOROTHIAZIDE [Concomitant]
     Indication: BLOOD PRESSURE
     Route: 048
  2. VITAMIN D [Concomitant]
     Indication: VITAMIN SUPPLEMENTATION
     Route: 048
  3. CALCIUM [Concomitant]
     Indication: MINERAL SUPPLEMENTATION
     Route: 048
  4. PREDNISONE [Concomitant]
     Indication: PRODUCT USED FOR UNKNOWN INDICATION
     Route: 048
  5. HUMIRA [Suspect]
     Route: 058
     Dates: start: 20100601, end: 20100801
  6. PERCOCET [Concomitant]
     Indication: ARTHRALGIA
     Route: 048
  7. HUMIRA [Suspect]
     Indication: RHEUMATOID ARTHRITIS
     Route: 058
     Dates: start: 20100301, end: 20100601
  8. ATENOLOL [Concomitant]
     Indication: CARDIAC DISORDER
     Route: 048
  9. NEXIUM [Concomitant]
     Indication: GASTROOESOPHAGEAL REFLUX DISEASE
     Route: 048

REACTIONS (7)
  - MUSCULOSKELETAL PAIN [None]
  - DIARRHOEA [None]
  - PYREXIA [None]
  - DRUG INEFFECTIVE [None]
  - TOOTH ABSCESS [None]
  - INFLUENZA LIKE ILLNESS [None]
  - PSORIASIS [None]
